FAERS Safety Report 7449057-4 (Version None)
Quarter: 2011Q2

REPORT INFORMATION
  Report Type: 
  Country: None (occurrence: None)
  Receive Date: 20110430
  Receipt Date: 20110420
  Transmission Date: 20111010
  Serious: Yes (Hospitalization)
  Sender: FDA-Public Use
  Company Number: FR-ABBOTT-11P-056-0722455-00

PATIENT
  Sex: Female

DRUGS (9)
  1. NOROXIN [Suspect]
     Indication: URINARY TRACT INFECTION
     Route: 048
     Dates: start: 20110212, end: 20110215
  2. SEROPLEX FILM-COATED TABLETS [Suspect]
     Indication: PRODUCT USED FOR UNKNOWN INDICATION
     Route: 048
     Dates: end: 20110215
  3. LEVOTHYROXINE SODIUM [Suspect]
     Indication: THYROIDECTOMY
     Route: 048
     Dates: end: 20110215
  4. LEVOTHYROXINE SODIUM [Suspect]
  5. FLUINDIONE [Suspect]
     Indication: ATRIAL FIBRILLATION
     Dates: end: 20110215
  6. CARDENSIEL [Suspect]
     Indication: CARDIOMYOPATHY
     Route: 048
     Dates: end: 20110215
  7. KARDEGIC [Suspect]
     Indication: CARDIOMYOPATHY
     Route: 048
     Dates: end: 20110215
  8. ELISOR [Suspect]
     Indication: CARDIOMYOPATHY
     Route: 048
     Dates: end: 20110215
  9. NEXIUM [Concomitant]
     Indication: PROPHYLAXIS AGAINST GASTROINTESTINAL ULCER
     Route: 048

REACTIONS (2)
  - INTERNATIONAL NORMALISED RATIO INCREASED [None]
  - MELAENA [None]
